FAERS Safety Report 9274593 (Version 4)
Quarter: 2013Q2

REPORT INFORMATION
  Report Type: Report from Study
  Country: CA (occurrence: CA)
  Receive Date: 20130507
  Receipt Date: 20130624
  Transmission Date: 20140414
  Serious: Yes (Other)
  Sender: FDA-Public Use
  Company Number: CA-ROCHE-1177025

PATIENT
  Age: 62 Year
  Sex: Female
  Weight: 64 kg

DRUGS (15)
  1. ACTEMRA [Suspect]
     Indication: RHEUMATOID ARTHRITIS
     Route: 042
     Dates: start: 20120823
  2. ACTEMRA [Suspect]
     Route: 042
     Dates: start: 20120924
  3. METHOTREXATE [Suspect]
     Indication: PRODUCT USED FOR UNKNOWN INDICATION
     Route: 065
  4. PLAVIX [Concomitant]
  5. CADUET [Concomitant]
  6. COVERSYL [Concomitant]
  7. ASA [Concomitant]
     Route: 065
  8. NITROGLYCERINE [Concomitant]
  9. NAPROXEN [Concomitant]
  10. LOSEC (CANADA) [Concomitant]
  11. PREDNISONE [Concomitant]
  12. FOLIC ACID [Concomitant]
  13. FOSAVANCE [Concomitant]
  14. ZANTAC [Concomitant]
  15. TYLENOL #3 (CANADA) [Concomitant]
     Route: 065

REACTIONS (10)
  - Scoliosis [Not Recovered/Not Resolved]
  - Wound [Recovered/Resolved]
  - Influenza [Recovered/Resolved]
  - Rheumatoid arthritis [Not Recovered/Not Resolved]
  - Nasopharyngitis [Recovered/Resolved]
  - Neck pain [Not Recovered/Not Resolved]
  - Musculoskeletal pain [Not Recovered/Not Resolved]
  - Nerve compression [Not Recovered/Not Resolved]
  - Muscle spasms [Not Recovered/Not Resolved]
  - Weight increased [Not Recovered/Not Resolved]
